FAERS Safety Report 16536826 (Version 1)
Quarter: 2019Q3

REPORT INFORMATION
  Report Type: Spontaneous
  Country: GB (occurrence: GB)
  Receive Date: 20190706
  Receipt Date: 20190706
  Transmission Date: 20191004
  Serious: Yes (Other)
  Sender: FDA-Public Use
  Company Number: GB-ALLERGAN-1927300US

PATIENT
  Sex: Male
  Weight: 96 kg

DRUGS (3)
  1. MESALAZINE UNK [Suspect]
     Active Substance: MESALAMINE
     Dosage: 1 G
     Dates: start: 20161011, end: 20181118
  2. MESALAZINE UNK [Suspect]
     Active Substance: MESALAMINE
     Dosage: 3200 UNK
     Route: 048
     Dates: start: 20161011, end: 20180517
  3. MESALAZINE UNK [Suspect]
     Active Substance: MESALAMINE
     Indication: COLITIS ULCERATIVE
     Dosage: 4800 MG
     Route: 048
     Dates: start: 20160518, end: 20181118

REACTIONS (9)
  - Thrombocytosis [Unknown]
  - Erythema [Unknown]
  - Arthralgia [Unknown]
  - Gout [Unknown]
  - Fatigue [Unknown]
  - Polycythaemia [Unknown]
  - Abnormal loss of weight [Unknown]
  - Chills [Unknown]
  - Colitis ulcerative [Unknown]

NARRATIVE: CASE EVENT DATE: 20190101
